FAERS Safety Report 8330034-6 (Version None)
Quarter: 2012Q2

REPORT INFORMATION
  Report Type: 
  Country: None (occurrence: None)
  Receive Date: 20120502
  Receipt Date: 20091229
  Transmission Date: 20120825
  Serious: No
  Sender: FDA-Public Use
  Company Number: US-TEVA-2009029909

PATIENT
  Sex: Female
  Weight: 40.406 kg

DRUGS (8)
  1. ADDERALL 5 [Concomitant]
     Indication: NARCOLEPSY
     Dosage: 15 MILLIGRAM;
     Dates: start: 20090101, end: 20091211
  2. KLONOPIN [Concomitant]
     Dates: start: 20020101
  3. ROZEREM [Concomitant]
     Dates: start: 20060101
  4. NEXIUM [Concomitant]
     Indication: GASTROOESOPHAGEAL REFLUX DISEASE
     Dates: start: 20020101
  5. ADDERALL 5 [Concomitant]
     Dates: start: 20091212
  6. SEROQUEL [Concomitant]
     Indication: DEPRESSION
     Dosage: 300 MILLIGRAM;
     Dates: start: 20020101
  7. NUVIGIL [Suspect]
     Indication: NARCOLEPSY
     Route: 048
     Dates: start: 20091120, end: 20091229
  8. SEROQUEL [Concomitant]
     Indication: AFFECTIVE DISORDER

REACTIONS (3)
  - DRUG INEFFECTIVE [None]
  - DIZZINESS [None]
  - INTENTIONAL DRUG MISUSE [None]
